FAERS Safety Report 20458181 (Version 1)
Quarter: 2022Q1

REPORT INFORMATION
  Report Type: Spontaneous
  Country: FR (occurrence: FR)
  Receive Date: 20220211
  Receipt Date: 20220211
  Transmission Date: 20220424
  Serious: Yes (Hospitalization)
  Sender: FDA-Public Use
  Company Number: None

PATIENT
  Age: 69 Year
  Sex: Male
  Weight: 64 kg

DRUGS (1)
  1. LEVOFLOXACIN [Suspect]
     Active Substance: LEVOFLOXACIN
     Indication: Staphylococcal bacteraemia
     Dosage: 1000 MG (500MG MATIN ET SOIR)
     Route: 048
     Dates: start: 20211108, end: 20211119

REACTIONS (3)
  - Acute kidney injury [Recovering/Resolving]
  - Cutaneous vasculitis [Recovering/Resolving]
  - Hepatic enzyme increased [Recovering/Resolving]

NARRATIVE: CASE EVENT DATE: 20211101
